FAERS Safety Report 18633691 (Version 1)
Quarter: 2020Q4

REPORT INFORMATION
  Report Type: Spontaneous
  Country: CN (occurrence: CN)
  Receive Date: 20201218
  Receipt Date: 20201218
  Transmission Date: 20210114
  Serious: Yes (Other)
  Sender: FDA-Public Use
  Company Number: CN-PFIZER INC-2020498965

PATIENT
  Age: 37 Year
  Sex: Female
  Weight: 46 kg

DRUGS (4)
  1. VFEND [Suspect]
     Active Substance: VORICONAZOLE
     Indication: CRYPTOCOCCOSIS
     Dosage: 200 MG, 2X/DAY
     Route: 045
     Dates: start: 20201205
  2. WEI HONG [Suspect]
     Active Substance: AZITHROMYCIN
     Indication: MYCOBACTERIUM ABSCESSUS INFECTION
     Dosage: 0.5 G, 1X/DAY
     Route: 045
     Dates: start: 20201205, end: 20201205
  3. CRAVIT [Suspect]
     Active Substance: LEVOFLOXACIN
     Indication: MYCOBACTERIUM ABSCESSUS INFECTION
     Dosage: 0.5 G, 1X/DAY
     Route: 045
     Dates: start: 20201205
  4. ZYVOX [Suspect]
     Active Substance: LINEZOLID
     Indication: MYCOBACTERIUM ABSCESSUS INFECTION
     Dosage: 0.6 G, 1X/DAY
     Route: 045
     Dates: start: 20201205

REACTIONS (5)
  - Abdominal distension [Recovering/Resolving]
  - Heart rate increased [Unknown]
  - Constipation [Recovering/Resolving]
  - Off label use [Unknown]
  - Product use issue [Unknown]

NARRATIVE: CASE EVENT DATE: 20201205
